FAERS Safety Report 20685912 (Version 1)
Quarter: 2022Q2

REPORT INFORMATION
  Report Type: Spontaneous
  Country: KR (occurrence: KR)
  Receive Date: 20220407
  Receipt Date: 20220407
  Transmission Date: 20220721
  Serious: No
  Sender: FDA-Public Use
  Company Number: KR-ELI_LILLY_AND_COMPANY-KR202204003967

PATIENT
  Age: 70 Year
  Sex: Female

DRUGS (2)
  1. ZYPREXA [Suspect]
     Active Substance: OLANZAPINE
     Indication: Tonsil cancer
     Dosage: 1 DOSAGE FORM, DAILY
     Route: 048
     Dates: start: 20180116, end: 20180127
  2. LEVOFLOXACIN [Suspect]
     Active Substance: LEVOFLOXACIN
     Indication: Tonsil cancer
     Dosage: 1 DOSAGE FORM, DAILY
     Route: 042
     Dates: start: 20180119, end: 20180127

REACTIONS (2)
  - Eosinophilia [Recovered/Resolved]
  - Off label use [Unknown]

NARRATIVE: CASE EVENT DATE: 20180124
